FAERS Safety Report 18854013 (Version 1)
Quarter: 2021Q1

REPORT INFORMATION
  Report Type: Spontaneous
  Country: DE (occurrence: DE)
  Receive Date: 20210205
  Receipt Date: 20210205
  Transmission Date: 20210420
  Serious: Yes (Other)
  Sender: FDA-Public Use
  Company Number: DE-AMGEN-DEUSP2018008401

PATIENT
  Age: 74 Year
  Sex: Male

DRUGS (1)
  1. TALIMOGENE LAHERPAREPVEC [Suspect]
     Active Substance: TALIMOGENE LAHERPAREPVEC
     Indication: MALIGNANT MELANOMA
     Dosage: UNK, 10^8 MIO PFU (3X 0.5 ML, 1X 1.2 ML) (10^6)
     Route: 026
     Dates: start: 20180103

REACTIONS (5)
  - Chills [Unknown]
  - Injection site rash [Unknown]
  - Pyrexia [Unknown]
  - Rash papular [Recovering/Resolving]
  - Fatigue [Unknown]

NARRATIVE: CASE EVENT DATE: 201801
